FAERS Safety Report 24329063 (Version 1)
Quarter: 2024Q3

REPORT INFORMATION
  Report Type: Spontaneous
  Country: US (occurrence: US)
  Receive Date: 20240917
  Receipt Date: 20240917
  Transmission Date: 20241016
  Serious: Yes (Disabling, Other)
  Sender: GLAXOSMITHKLINE
  Company Number: US-GLAXOSMITHKLINE-US2024AMR113934

PATIENT

DRUGS (1)
  1. TRELEGY ELLIPTA [Suspect]
     Active Substance: FLUTICASONE FUROATE\UMECLIDINIUM BROMIDE\VILANTEROL TRIFENATATE
     Indication: Product used for unknown indication
     Dosage: UNK

REACTIONS (10)
  - Myocardial infarction [Unknown]
  - Coronary artery bypass [Unknown]
  - Pneumonia [Unknown]
  - Pulmonary embolism [Unknown]
  - Lung carcinoma cell type unspecified stage I [Unknown]
  - Disability [Unknown]
  - Thrombosis [Unknown]
  - Influenza [Unknown]
  - Emphysema [Unknown]
  - Chronic obstructive pulmonary disease [Unknown]

NARRATIVE: CASE EVENT DATE: 20240406
